FAERS Safety Report 4597923-X (Version None)
Quarter: 2005Q1

REPORT INFORMATION
  Report Type: 
  Country: None (occurrence: None)
  Receive Date: 20050125
  Receipt Date: 20040830
  Transmission Date: 20050727
  Serious: No
  Sender: FDA-Public Use
  Company Number: USA040876857

PATIENT
  Age: 69 Year
  Sex: Female

DRUGS (2)
  1. FORTEO [Suspect]
     Indication: BONE DISORDER
     Dosage: 20 UG/1 DAY
  2. SALINE (SODIUM CHLORIDE) [Suspect]
     Dates: start: 20040803, end: 20040810

REACTIONS (1)
  - MEDICATION ERROR [None]
